FAERS Safety Report 10152927 (Version 1)
Quarter: 2014Q2

REPORT INFORMATION
  Report Type: Spontaneous
  Country: FR (occurrence: FR)
  Receive Date: 20140505
  Receipt Date: 20140505
  Transmission Date: 20141212
  Serious: Yes (Hospitalization)
  Sender: FDA-Public Use
  Company Number: FR-GLAXOSMITHKLINE-B0989547A

PATIENT
  Age: 59 Year
  Sex: Female

DRUGS (21)
  1. LAMICTAL [Suspect]
     Indication: PRODUCT USED FOR UNKNOWN INDICATION
     Dosage: 1UNIT TWICE PER DAY
     Route: 048
     Dates: start: 201401
  2. DULCOLAX [Suspect]
     Indication: CONSTIPATION
     Dosage: 1UNIT ALTERNATE DAYS
     Route: 048
     Dates: start: 201401, end: 20140407
  3. MAG 2 [Suspect]
     Indication: PRODUCT USED FOR UNKNOWN INDICATION
     Dosage: 1UNIT TWICE PER DAY
     Route: 065
     Dates: start: 2014, end: 20140411
  4. SERTRALINE [Suspect]
     Indication: DEPRESSION
     Dosage: 50MG THREE TIMES PER DAY
     Route: 065
     Dates: start: 201401, end: 20140407
  5. OXAZEPAM [Concomitant]
     Indication: PRODUCT USED FOR UNKNOWN INDICATION
     Route: 065
  6. NUTRITIONAL SUPPLEMENT [Concomitant]
     Indication: PRODUCT USED FOR UNKNOWN INDICATION
     Route: 065
  7. PARACETAMOL [Concomitant]
     Indication: PRODUCT USED FOR UNKNOWN INDICATION
     Route: 065
  8. DIFFU K [Concomitant]
     Indication: PRODUCT USED FOR UNKNOWN INDICATION
     Route: 065
  9. UVEDOSE [Concomitant]
     Indication: PRODUCT USED FOR UNKNOWN INDICATION
     Route: 065
  10. TRIMEBUTINE [Concomitant]
     Indication: PRODUCT USED FOR UNKNOWN INDICATION
     Route: 065
  11. SERETIDE [Concomitant]
     Indication: PRODUCT USED FOR UNKNOWN INDICATION
     Route: 065
  12. TRIAMCINOLONE [Concomitant]
     Indication: PRODUCT USED FOR UNKNOWN INDICATION
     Route: 065
  13. ELUDRIL [Concomitant]
     Indication: PRODUCT USED FOR UNKNOWN INDICATION
     Route: 065
  14. ALOPLASTINE [Concomitant]
     Indication: PRODUCT USED FOR UNKNOWN INDICATION
     Route: 065
  15. SANDOSTATINE [Concomitant]
     Indication: PRODUCT USED FOR UNKNOWN INDICATION
     Route: 065
     Dates: start: 201403, end: 20140410
  16. TIORFAN [Concomitant]
     Indication: PRODUCT USED FOR UNKNOWN INDICATION
     Route: 065
     Dates: start: 201403
  17. DONEPEZIL [Concomitant]
     Indication: PRODUCT USED FOR UNKNOWN INDICATION
     Route: 065
     Dates: start: 201401, end: 201403
  18. ESOMEPRAZOLE [Concomitant]
     Route: 065
  19. LOVENOX [Concomitant]
     Route: 065
  20. POTASSIUM [Concomitant]
     Route: 048
  21. ROCEPHINE [Concomitant]
     Indication: URINARY TRACT INFECTION
     Route: 065
     Dates: start: 201403

REACTIONS (6)
  - Diarrhoea [Not Recovered/Not Resolved]
  - Abdominal distension [Unknown]
  - Hypokalaemia [Unknown]
  - Hypomagnesaemia [Unknown]
  - Colonic pseudo-obstruction [Unknown]
  - Melanosis coli [Unknown]
